FAERS Safety Report 17549721 (Version 1)
Quarter: 2020Q1

REPORT INFORMATION
  Report Type: Spontaneous
  Country: US (occurrence: US)
  Receive Date: 20200309
  Receipt Date: 20200309
  Transmission Date: 20200409
  Serious: Yes (Hospitalization)
  Sender: FDA-Public Use
  Company Number: None

PATIENT
  Sex: Female

DRUGS (11)
  1. PREDNISONE. [Concomitant]
     Active Substance: PREDNISONE
  2. ROPINIROLE. [Concomitant]
     Active Substance: ROPINIROLE
  3. OXYCODONE [Concomitant]
     Active Substance: OXYCODONE
  4. VENTOLIN HFA [Concomitant]
     Active Substance: ALBUTEROL SULFATE
  5. GLEEVEC [Suspect]
     Active Substance: IMATINIB MESYLATE
     Indication: CHRONIC MYELOID LEUKAEMIA
     Dosage: ?          OTHER DOSE:1 TAB;?
     Route: 048
     Dates: start: 20150918
  6. FLECAINIDE [Concomitant]
     Active Substance: FLECAINIDE
  7. LEVOTHYROXIN [Concomitant]
     Active Substance: LEVOTHYROXINE
  8. NAPROXEN. [Concomitant]
     Active Substance: NAPROXEN
  9. DOXYCYC MONO [Concomitant]
     Active Substance: DOXYCYCLINE
  10. PROMETHAZINE [Concomitant]
     Active Substance: PROMETHAZINE HYDROCHLORIDE
  11. TIZANIDINE. [Concomitant]
     Active Substance: TIZANIDINE

REACTIONS (1)
  - Arthritis infective [None]
